FAERS Safety Report 5798168-8 (Version None)
Quarter: 2008Q3

REPORT INFORMATION
  Report Type: 
  Country: None (occurrence: None)
  Receive Date: 20080702
  Receipt Date: 20080624
  Transmission Date: 20090109
  Serious: Yes (Congenital Anomaly)
  Sender: FDA-Public Use
  Company Number: A0729106A

PATIENT
  Sex: Male
  Weight: 3.5 kg

DRUGS (13)
  1. PAXIL CR [Suspect]
     Indication: DEPRESSION
     Dosage: 25MG PER DAY
     Dates: start: 20020730, end: 20031218
  2. FUROSEMIDE [Concomitant]
     Dates: start: 20030226
  3. NEURONTIN [Concomitant]
     Dates: start: 20020829, end: 20030101
  4. TOPAMAX [Concomitant]
     Dates: start: 20020819, end: 20030101
  5. ENDOCET [Concomitant]
     Dates: start: 20020401, end: 20030101
  6. MYCELEX [Concomitant]
     Dates: start: 20030318
  7. TRAZODONE HCL [Concomitant]
     Dates: start: 20030225
  8. PROPOXYPHENE HCL AND ACETAMINOPHEN [Concomitant]
     Dates: start: 20030619
  9. ACETAMINOPHEN [Concomitant]
     Dates: start: 20030722
  10. MEBENDAZOLE [Concomitant]
     Dates: start: 20031022
  11. AMOXICILLIN [Concomitant]
     Dates: start: 20030722
  12. CHLORHEXIDINE GLUCONATE [Concomitant]
     Dates: start: 20030722
  13. VITAMIN TAB [Concomitant]

REACTIONS (5)
  - AORTIC VALVE STENOSIS [None]
  - ATRIAL SEPTAL DEFECT [None]
  - CONGENITAL AORTIC VALVE INCOMPETENCE [None]
  - DRUG EXPOSURE DURING PREGNANCY [None]
  - LEFT VENTRICULAR HYPERTROPHY [None]
